FAERS Safety Report 19561547 (Version 1)
Quarter: 2021Q3

REPORT INFORMATION
  Report Type: Other
  Country: CA (occurrence: CA)
  Receive Date: 20210716
  Receipt Date: 20210716
  Transmission Date: 20211014
  Serious: Yes (Hospitalization, Other)
  Sender: FDA-Public Use
  Company Number: CA-APOTEX-2021AP017174

PATIENT
  Age: 64 Year
  Sex: Male

DRUGS (8)
  1. TIOTROPIUM [Suspect]
     Active Substance: TIOTROPIUM
     Indication: ASTHMA
     Dosage: UNK
     Route: 065
  2. TIOTROPIUM BROMIDE [Suspect]
     Active Substance: TIOTROPIUM BROMIDE
     Indication: ASTHMA
     Dosage: 2 DOSAGE FORM, QD
     Route: 065
  3. PREDNISONE. [Suspect]
     Active Substance: PREDNISONE
     Indication: ASTHMA
     Dosage: 50 MILLIGRAM, QD
     Route: 065
  4. PANTOPRAZOLE [Suspect]
     Active Substance: PANTOPRAZOLE
     Indication: GASTROOESOPHAGEAL REFLUX DISEASE
     Dosage: 40 MILLIGRAM, QD
     Route: 065
  5. SALBUTAMOL [Suspect]
     Active Substance: ALBUTEROL
     Indication: ASTHMA
     Dosage: 100 MILLIGRAM
     Route: 065
  6. BUDESONIDE;FORMOTEROL FUMARATE [Suspect]
     Active Substance: BUDESONIDE\FORMOTEROL FUMARATE
     Indication: ASTHMA
     Dosage: UNK
  7. NUCALA [Suspect]
     Active Substance: MEPOLIZUMAB
     Indication: ASTHMA
     Dosage: 100 MILLIGRAM
     Route: 042
  8. ALVESCO [Suspect]
     Active Substance: CICLESONIDE
     Indication: ASTHMA
     Dosage: 2 DOSAGE FORM, QD

REACTIONS (26)
  - Condition aggravated [Recovered/Resolved]
  - Lung consolidation [Recovered/Resolved]
  - Lymphadenopathy [Recovered/Resolved]
  - Fatigue [Recovered/Resolved]
  - Oxygen saturation decreased [Recovered/Resolved]
  - Productive cough [Recovered/Resolved]
  - Renal cyst [Recovered/Resolved]
  - Chest discomfort [Recovered/Resolved]
  - Blood count abnormal [Recovered/Resolved]
  - Bronchiectasis [Recovered/Resolved]
  - Dyspnoea exertional [Recovered/Resolved]
  - Snoring [Recovered/Resolved]
  - Therapeutic product effect incomplete [Recovered/Resolved]
  - Lung opacity [Recovered/Resolved]
  - Nasal congestion [Recovered/Resolved]
  - Vascular shunt [Recovered/Resolved]
  - Asthma [Recovered/Resolved]
  - Chest X-ray abnormal [Recovered/Resolved]
  - Hypoxia [Recovered/Resolved]
  - Sleep apnoea syndrome [Recovered/Resolved]
  - Bronchial secretion retention [Recovered/Resolved]
  - Eosinophil count increased [Recovered/Resolved]
  - Bronchiolitis [Recovered/Resolved]
  - Obstruction [Recovered/Resolved]
  - Sputum discoloured [Recovered/Resolved]
  - Wheezing [Recovered/Resolved]
